FAERS Safety Report 5858823-8 (Version None)
Quarter: 2008Q3

REPORT INFORMATION
  Report Type: 
  Country: None (occurrence: None)
  Receive Date: 20080825
  Receipt Date: 20080818
  Transmission Date: 20090109
  Serious: Yes (Hospitalization)
  Sender: FDA-Public Use
  Company Number: 2008AL005452

PATIENT
  Age: 85 Year
  Sex: Female

DRUGS (1)
  1. DIGOXIN [Suspect]
     Dosage: PO
     Route: 048

REACTIONS (6)
  - ASTHENIA [None]
  - DIARRHOEA [None]
  - DIZZINESS [None]
  - FALL [None]
  - HEART RATE IRREGULAR [None]
  - HYPERTENSION [None]
